FAERS Safety Report 22646914 (Version 1)
Quarter: 2023Q2

REPORT INFORMATION
  Report Type: Report from Study
  Country: ES (occurrence: ES)
  Receive Date: 20230627
  Receipt Date: 20230627
  Transmission Date: 20230722
  Serious: Yes (Hospitalization)
  Sender: FDA-Public Use
  Company Number: ES-GENMAB-2023-00885

PATIENT
  Age: 83 Year
  Sex: Male

DRUGS (17)
  1. EPCORITAMAB [Suspect]
     Active Substance: EPCORITAMAB
     Indication: Non-Hodgkin^s lymphoma
     Dosage: 48 MG, EVERY 4 WEEKS
     Route: 058
     Dates: start: 20230109
  2. LENALIDOMIDE [Suspect]
     Active Substance: LENALIDOMIDE
     Indication: Non-Hodgkin^s lymphoma
     Dosage: 25 MG DAYS 1-21 OF EVERY CYCLE, EVERY 1 DAYS
     Route: 048
     Dates: start: 20230109, end: 20230512
  3. VENETOCLAX [Suspect]
     Active Substance: VENETOCLAX
     Indication: Non-Hodgkin^s lymphoma
     Dosage: DRUG NOT ADMINISTERED
  4. IBRUTINIB [Suspect]
     Active Substance: IBRUTINIB
     Indication: Non-Hodgkin^s lymphoma
     Dosage: DRUG NOT ADMINISTERED
  5. OMEPRAZOLE [Concomitant]
     Active Substance: OMEPRAZOLE
     Indication: Gastrointestinal disorder prophylaxis
     Dosage: 20 MG, 7/WEEKS
     Dates: start: 2022
  6. SULFAMETHOXAZOLE\TRIMETHOPRIM [Concomitant]
     Active Substance: SULFAMETHOXAZOLE\TRIMETHOPRIM
     Indication: Infection prophylaxis
     Dosage: 160/800 MG, 4/WEEKS
     Dates: start: 2021
  7. CARBAMAZEPINE [Concomitant]
     Active Substance: CARBAMAZEPINE
     Indication: Prophylaxis
     Dosage: 400 MG, EVERY 48 HOURS
     Dates: start: 20151125
  8. OLANZAPINE [Concomitant]
     Active Substance: OLANZAPINE
     Indication: Personality disorder
     Dosage: 2.5 MG, 7/WEEKS
     Dates: start: 20210603
  9. HIBOR [Concomitant]
     Indication: Thrombosis prophylaxis
     Dosage: 10000 IU, 7/WEEKS
     Dates: start: 20220829
  10. FUROSEMIDE [Concomitant]
     Active Substance: FUROSEMIDE
     Indication: Hypertension
     Dosage: 40 MG, EVERY 1 DAYS
     Dates: start: 20230123, end: 20230520
  11. MYCOSTATIN [Concomitant]
     Active Substance: NYSTATIN
     Indication: Oral discomfort
     Dosage: 1 DRINK, 3/DAYS
     Dates: start: 20230213
  12. CLORHEXIDINA [CHLORHEXIDINE] [Concomitant]
     Indication: Antifungal prophylaxis
     Dosage: 1 DRINK, 3/WEEKS
     Dates: start: 20230213
  13. FOLIC ACID [Concomitant]
     Active Substance: FOLIC ACID
     Indication: Anaemia prophylaxis
     Dosage: 5 MG, EVERY 1 DAYS
     Dates: start: 20230405
  14. PREDNISONE [Concomitant]
     Active Substance: PREDNISONE
     Indication: Prophylaxis
     Dosage: 100 MG, EVERY 1 DAYS
     Dates: start: 20230502, end: 20230505
  15. PREDNISONE [Concomitant]
     Active Substance: PREDNISONE
     Dosage: 100 MG, EVERY 1 DAYS
     Dates: start: 20230508, end: 20230511
  16. POLARAMINE [Concomitant]
     Active Substance: DEXCHLORPHENIRAMINE MALEATE
     Indication: Premedication
     Dosage: 6 MG, TOTAL
     Dates: start: 20230508, end: 20230508
  17. AKYNZEO (NETUPITANT\PALONOSETRON) [Concomitant]
     Active Substance: NETUPITANT\PALONOSETRON
     Indication: Prophylaxis of nausea and vomiting
     Dosage: 1 DOSAGE FORM, TOTAL
     Dates: start: 20230508, end: 20230508

REACTIONS (1)
  - Pneumonia pneumococcal [Not Recovered/Not Resolved]

NARRATIVE: CASE EVENT DATE: 20230514
